FAERS Safety Report 5681620-3 (Version None)
Quarter: 2008Q1

REPORT INFORMATION
  Report Type: 
  Country: None (occurrence: None)
  Receive Date: 20080326
  Receipt Date: 20070222
  Transmission Date: 20080703
  Serious: No
  Sender: FDA-Public Use
  Company Number: US-BAYER-US-2007-006421

PATIENT
  Sex: Female

DRUGS (1)
  1. MIRENA [Suspect]
     Route: 015
     Dates: start: 20050101

REACTIONS (9)
  - ABDOMINAL PAIN UPPER [None]
  - BREAST PAIN [None]
  - HERPES VIRUS INFECTION [None]
  - INFLUENZA LIKE ILLNESS [None]
  - IUCD COMPLICATION [None]
  - OLIGOMENORRHOEA [None]
  - UTERINE INFECTION [None]
  - VAGINAL DISCHARGE [None]
  - VAGINAL HAEMORRHAGE [None]
